FAERS Safety Report 18658843 (Version 1)
Quarter: 2020Q4

REPORT INFORMATION
  Report Type: Spontaneous
  Country: IT (occurrence: IT)
  Receive Date: 20201224
  Receipt Date: 20201224
  Transmission Date: 20210114
  Serious: Yes (Hospitalization, Other)
  Sender: FDA-Public Use
  Company Number: IT-TEVA-2020-IT-1861067

PATIENT
  Sex: Male

DRUGS (4)
  1. RASAGILINE. [Concomitant]
     Active Substance: RASAGILINE
     Route: 048
  2. ROTIGOTINE [Suspect]
     Active Substance: ROTIGOTINE
     Indication: PARKINSON^S DISEASE
     Dosage: DOSE: UPTO 12MG/DAY
     Route: 065
  3. PRAMIPEXOLE. [Suspect]
     Active Substance: PRAMIPEXOLE
     Indication: PARKINSON^S DISEASE
     Dosage: DOSE: UPTO 2.1 MG/DAY
     Route: 065
  4. LEVODOPA [Concomitant]
     Active Substance: LEVODOPA
     Route: 048

REACTIONS (2)
  - Hyponatraemia [Recovered/Resolved]
  - Inappropriate antidiuretic hormone secretion [Recovered/Resolved]
